FAERS Safety Report 9177430 (Version 2)
Quarter: 2013Q2

REPORT INFORMATION
  Report Type: Spontaneous
  Country: US (occurrence: US)
  Receive Date: 20130321
  Receipt Date: 20130604
  Transmission Date: 20140414
  Serious: Yes (Hospitalization, Other)
  Sender: FDA-Public Use
  Company Number: US-PFIZER INC-2013092892

PATIENT
  Age: 53 Year
  Sex: Female

DRUGS (2)
  1. CHANTIX [Suspect]
     Dosage: STARTING PACK AND 1MG CONTINUING MONTH PACK
     Dates: start: 20080813
  2. CHANTIX [Suspect]
     Dosage: UNK
     Dates: start: 20081202, end: 20090201

REACTIONS (2)
  - Intentional overdose [Unknown]
  - Suicide attempt [Unknown]
